FAERS Safety Report 8107007-1 (Version None)
Quarter: 2012Q1

REPORT INFORMATION
  Report Type: 
  Country: None (occurrence: None)
  Receive Date: 20120202
  Receipt Date: 20120202
  Transmission Date: 20120608
  Serious: No
  Sender: FDA-Public Use
  Company Number: None

PATIENT
  Age: 43 Year
  Sex: Female
  Weight: 79 kg

DRUGS (2)
  1. CALCIUM 1200 MG [Concomitant]
     Dosage: 1 CAPSULE TAKEN
     Route: 048
  2. VITAMIN D [Suspect]
     Indication: VITAMIN D DEFICIENCY
     Dosage: 1 CAPSULE TAKEN
     Route: 048
     Dates: start: 20120131, end: 20120201

REACTIONS (2)
  - PHARYNGEAL DISORDER [None]
  - PYREXIA [None]
